FAERS Safety Report 16986006 (Version 1)
Quarter: 2019Q4

REPORT INFORMATION
  Report Type: Spontaneous
  Country: US (occurrence: US)
  Receive Date: 20190917
  Receipt Date: 20190917
  Transmission Date: 20200122
  Serious: Yes (Hospitalization)
  Sender: FDA-Public Use
  Company Number: None

PATIENT
  Age: 67 Year
  Sex: Female

DRUGS (17)
  1. CELEBREX [Concomitant]
     Active Substance: CELECOXIB
  2. MULTI VITAMIN [Concomitant]
     Active Substance: VITAMINS
  3. METFORMIN [Concomitant]
     Active Substance: METFORMIN HYDROCHLORIDE
  4. RITALIN [Concomitant]
     Active Substance: METHYLPHENIDATE HYDROCHLORIDE
  5. VITAMIN C [Concomitant]
     Active Substance: ASCORBIC ACID
  6. WELCHOL [Concomitant]
     Active Substance: COLESEVELAM HYDROCHLORIDE
  7. MONTELUKAST [Concomitant]
     Active Substance: MONTELUKAST SODIUM
  8. PREVALITE [Concomitant]
     Active Substance: CHOLESTYRAMINE
  9. PROBIOTIC [Concomitant]
     Active Substance: PROBIOTICS NOS
  10. ASPIRIN. [Concomitant]
     Active Substance: ASPIRIN
  11. PREVACID [Concomitant]
     Active Substance: LANSOPRAZOLE
  12. FLAXSEED [Concomitant]
     Active Substance: FLAX SEED
  13. SULFAMETHOX [Concomitant]
  14. REBIF [Suspect]
     Active Substance: INTERFERON BETA-1A
     Indication: MULTIPLE SCLEROSIS
     Route: 058
     Dates: start: 20180306
  15. FISH OIL [Concomitant]
     Active Substance: FISH OIL
  16. ZOLPIDEM [Concomitant]
     Active Substance: ZOLPIDEM TARTRATE
  17. TRIAMT/HCTZ [Concomitant]
     Active Substance: HYDROCHLOROTHIAZIDE\TRIAMTERENE

REACTIONS (1)
  - Mental disorder [None]

NARRATIVE: CASE EVENT DATE: 20190601
